FAERS Safety Report 9178654 (Version 1)
Quarter: 2013Q1

REPORT INFORMATION
  Report Type: Spontaneous
  Country: AU (occurrence: AU)
  Receive Date: 20130321
  Receipt Date: 20130321
  Transmission Date: 20140127
  Serious: Yes (Other)
  Sender: FDA-Public Use
  Company Number: AU-GLAXOSMITHKLINE-B0876161A

PATIENT
  Age: 60 Year
  Sex: Female

DRUGS (5)
  1. ORLISTAT [Suspect]
     Indication: WEIGHT DECREASED
     Dosage: 120MG THREE TIMES PER DAY
     Route: 048
  2. THYROXINE [Concomitant]
  3. RABEPRAZOLE [Concomitant]
  4. DOXEPIN [Concomitant]
  5. CHLORPROMAZINE [Concomitant]

REACTIONS (2)
  - Nephropathy [Recovering/Resolving]
  - Hyperoxaluria [Recovering/Resolving]
